FAERS Safety Report 5904548-X (Version None)
Quarter: 2008Q4

REPORT INFORMATION
  Report Type: 
  Country: None (occurrence: None)
  Receive Date: 20081001
  Receipt Date: 20080910
  Transmission Date: 20090506
  Serious: Yes (Other)
  Sender: FDA-Public Use
  Company Number: JP-NOVOPROD-279447

PATIENT
  Age: 9 Year
  Sex: Female
  Weight: 20 kg

DRUGS (1)
  1. NORDITROPIN S CHU [Suspect]
     Dosage: 1.1 MG, UNK
     Route: 058
     Dates: start: 20071205, end: 20080903

REACTIONS (1)
  - BASAL CELL CARCINOMA [None]
